FAERS Safety Report 5281628-6 (Version None)
Quarter: 2007Q1

REPORT INFORMATION
  Report Type: 
  Country: None (occurrence: None)
  Receive Date: 20070326
  Receipt Date: 20070309
  Transmission Date: 20070707
  Serious: Yes (Other)
  Sender: FDA-Public Use
  Company Number: 238618

PATIENT
  Sex: Male

DRUGS (3)
  1. AVASTIN [Suspect]
     Indication: DRUG USE FOR UNKNOWN INDICATION
     Dosage: 5 MG/KG, INTRAVENOUS
     Route: 042
     Dates: start: 20070306
  2. DEXAMETHASONE TAB [Concomitant]
  3. OXALIPLATIN [Concomitant]

REACTIONS (2)
  - FLUSHING [None]
  - SHOCK [None]
